FAERS Safety Report 4638798-X (Version None)
Quarter: 2005Q2

REPORT INFORMATION
  Report Type: 
  Country: None (occurrence: None)
  Receive Date: 20050419
  Receipt Date: 20050411
  Transmission Date: 20051028
  Serious: Yes (Other)
  Sender: FDA-Public Use
  Company Number: 200510964EU

PATIENT
  Age: 2 Month
  Sex: 0

DRUGS (1)
  1. ENOXAPARIN SODIUM [Suspect]
     Indication: THROMBOSIS

REACTIONS (5)
  - DRUG EXPOSURE VIA BREAST MILK [None]
  - FEEDING PROBLEM IN NEWBORN [None]
  - HEPATIC FUNCTION ABNORMAL [None]
  - TRANSAMINASES INCREASED [None]
  - WEIGHT DECREASED [None]
